FAERS Safety Report 10150160 (Version 2)
Quarter: 2014Q2

REPORT INFORMATION
  Report Type: Spontaneous
  Country: JP (occurrence: JP)
  Receive Date: 20140502
  Receipt Date: 20140527
  Transmission Date: 20141212
  Serious: Yes (Life-Threatening, Hospitalization)
  Sender: FDA-Public Use
  Company Number: JP-GLAXOSMITHKLINE-B0990035A

PATIENT
  Age: 38 Year
  Sex: Female

DRUGS (2)
  1. LAMICTAL [Suspect]
     Indication: EPILEPSY
     Dosage: 25MG ALTERNATE DAYS
     Route: 048
     Dates: start: 20140315, end: 20140329
  2. DEPAKENE-R [Concomitant]
     Indication: EPILEPSY
     Route: 048
     Dates: start: 2008

REACTIONS (7)
  - Histiocytosis haematophagic [Recovered/Resolved]
  - Disseminated intravascular coagulation [Recovered/Resolved]
  - Rash [Recovered/Resolved]
  - Pyrexia [Recovering/Resolving]
  - Rash generalised [Recovering/Resolving]
  - Hepatic function abnormal [Recovering/Resolving]
  - Infection [Recovering/Resolving]
